FAERS Safety Report 17093193 (Version 1)
Quarter: 2019Q4

REPORT INFORMATION
  Report Type: Spontaneous
  Country: LU (occurrence: LU)
  Receive Date: 20191129
  Receipt Date: 20191129
  Transmission Date: 20200122
  Serious: Yes (Death)
  Sender: FDA-Public Use
  Company Number: LU-TEVA-2019-LU-1143474

PATIENT
  Age: 76 Year
  Sex: Male

DRUGS (10)
  1. DITROPAN [Concomitant]
     Active Substance: OXYBUTYNIN CHLORIDE
     Route: 048
     Dates: start: 200511
  2. CLOTIAZEPAM [Suspect]
     Active Substance: CLOTIAZEPAM
     Indication: ANXIETY
     Route: 048
     Dates: start: 200604
  3. LORAZEPAM. [Suspect]
     Active Substance: LORAZEPAM
     Indication: ANXIETY
     Route: 048
     Dates: start: 199503
  4. ZOLADEX 10,8 MG, IMPLANT EN SERINGUE PREREMPLIE POUR VOIE SOUS-CUTANEE [Concomitant]
     Indication: PROSTATE CANCER
     Route: 058
     Dates: start: 200401
  5. PALMIER DE FLORIDE (SERENOAS REPENS), EXTRAIT MOU DE FRUIT [Concomitant]
     Route: 048
     Dates: start: 200511
  6. LORMETAZEPAM [Concomitant]
     Active Substance: LORMETAZEPAM
     Indication: ANXIETY
     Dates: start: 199503, end: 200510
  7. ZOLPIDEM [Suspect]
     Active Substance: ZOLPIDEM TARTRATE
     Indication: ANXIETY
     Route: 048
     Dates: start: 200510
  8. PAROXETINE (CHLORHYDRATE DE) HEMIHYDRATE [Suspect]
     Active Substance: PAROXETINE HYDROCHLORIDE
     Indication: PRODUCT USED FOR UNKNOWN INDICATION
     Route: 048
     Dates: start: 200301
  9. GLURENORM 30 MG, COMPRIME [Concomitant]
  10. ATACAND [Concomitant]
     Active Substance: CANDESARTAN CILEXETIL
     Route: 048

REACTIONS (1)
  - Completed suicide [Fatal]

NARRATIVE: CASE EVENT DATE: 200610
